FAERS Safety Report 9393179 (Version 1)
Quarter: 2013Q3

REPORT INFORMATION
  Report Type: Spontaneous
  Country: US (occurrence: US)
  Receive Date: 20130710
  Receipt Date: 20130710
  Transmission Date: 20140515
  Serious: No
  Sender: FDA-Public Use
  Company Number: US-BAYER-2013-080668

PATIENT
  Sex: Male

DRUGS (3)
  1. GADAVIST [Suspect]
     Indication: NUCLEAR MAGNETIC RESONANCE IMAGING BRAIN
     Dosage: 10 ML, ONCE
     Dates: start: 20130629, end: 20130629
  2. GADAVIST [Suspect]
     Indication: HEADACHE
  3. GADAVIST [Suspect]
     Indication: PROSTATE CANCER

REACTIONS (2)
  - Urticaria [None]
  - Pruritus [None]
